FAERS Safety Report 18289266 (Version 2)
Quarter: 2020Q4

REPORT INFORMATION
  Report Type: Spontaneous
  Country: US (occurrence: US)
  Receive Date: 20200921
  Receipt Date: 20201026
  Transmission Date: 20210113
  Serious: No
  Sender: FDA-Public Use
  Company Number: NVSC2020US256744

PATIENT
  Sex: Male

DRUGS (3)
  1. HYCAMTIN [Suspect]
     Active Substance: TOPOTECAN HYDROCHLORIDE
     Indication: BRAIN NEOPLASM MALIGNANT
     Dosage: 4 MG, QD (FOR 5 DAYS EVERY 3 WEEKS)
     Route: 048
     Dates: start: 20200516
  2. HYCAMTIN [Suspect]
     Active Substance: TOPOTECAN HYDROCHLORIDE
     Indication: LUNG CARCINOMA CELL TYPE UNSPECIFIED STAGE 0
     Dosage: 3 MG, QD FOR 5 DAYS
     Route: 048
     Dates: start: 20200515
  3. HYCAMTIN [Suspect]
     Active Substance: TOPOTECAN HYDROCHLORIDE
     Indication: LUNG NEOPLASM MALIGNANT
     Dosage: 3 DF, QD (FOR 5 DAYS (EVERY 21 DAY))
     Route: 048

REACTIONS (4)
  - Fatigue [Unknown]
  - Haemoglobin decreased [Unknown]
  - Platelet count decreased [Unknown]
  - Blood sodium decreased [Unknown]
